FAERS Safety Report 9588329 (Version 1)
Quarter: 2013Q4

REPORT INFORMATION
  Report Type: Spontaneous
  Country: US (occurrence: US)
  Receive Date: 20131003
  Receipt Date: 20131003
  Transmission Date: 20140711
  Serious: No
  Sender: FDA-Public Use
  Company Number: US-AMGEN-USASP2012063314

PATIENT
  Age: 49 Year
  Sex: Female
  Weight: 54.88 kg

DRUGS (2)
  1. ENBREL [Suspect]
     Indication: PRODUCT USED FOR UNKNOWN INDICATION
     Dosage: 50 MG/ML, QWK
     Route: 058
  2. HUMIRA [Concomitant]
     Dosage: 40 MG/0.8, UNK

REACTIONS (1)
  - Drug ineffective [Unknown]
